FAERS Safety Report 4633799-X (Version None)
Quarter: 2005Q2

REPORT INFORMATION
  Report Type: 
  Country: None (occurrence: None)
  Receive Date: 20050325
  Receipt Date: 20041210
  Transmission Date: 20051028
  Serious: No
  Sender: FDA-Public Use
  Company Number: USA041285877

PATIENT
  Age: 82 Year
  Sex: Female

DRUGS (6)
  1. FORTEO [Suspect]
     Indication: OSTEOPOROSIS
     Dates: start: 20040601
  2. CELEBREX [Concomitant]
  3. ASPIRIN [Concomitant]
  4. VIACTIV [Concomitant]
  5. CENTRUM [Concomitant]
  6. ALENDRONATE SODIUM [Concomitant]

REACTIONS (2)
  - BLADDER OBSTRUCTION [None]
  - FLANK PAIN [None]
